FAERS Safety Report 9044723 (Version 3)
Quarter: 2014Q1

REPORT INFORMATION
  Report Type: Report from Study
  Country: FR (occurrence: FR)
  Receive Date: 20130130
  Receipt Date: 20140318
  Transmission Date: 20141002
  Serious: Yes (Hospitalization)
  Sender: FDA-Public Use
  Company Number: FR-UCBSA-076677

PATIENT
  Age: 50 Year
  Sex: Female

DRUGS (15)
  1. CIMZIA [Suspect]
     Indication: RHEUMATOID ARTHRITIS
     Route: 058
     Dates: start: 20120809, end: 20121123
  2. CORTANCYL [Suspect]
     Indication: RHEUMATOID ARTHRITIS
     Route: 048
     Dates: start: 200711
  3. OMEPRAZOLE [Concomitant]
  4. IMETH [Concomitant]
     Indication: RHEUMATOID ARTHRITIS
     Route: 048
     Dates: start: 200107
  5. DOLIPRANE [Concomitant]
     Indication: RHEUMATOID ARTHRITIS
  6. CYMBALTA [Concomitant]
     Dates: end: 201209
  7. XANAX [Concomitant]
     Indication: ANXIETY
  8. ANAFRANIL [Concomitant]
     Indication: DEPRESSION
     Dates: start: 20120715
  9. SPECIAFOLDINE [Concomitant]
     Indication: RHEUMATOID ARTHRITIS
     Dates: start: 200107
  10. SMECTA [Concomitant]
     Indication: DIARRHOEA
     Dates: start: 201208, end: 2012
  11. IMODIUM [Concomitant]
     Indication: DIARRHOEA
     Dates: start: 201208, end: 2012
  12. DEBRIDAT [Concomitant]
     Indication: DIARRHOEA
     Dates: start: 201208, end: 2012
  13. SPASFON [Concomitant]
     Indication: DIARRHOEA
     Dates: start: 201208, end: 2012
  14. XARELTO [Concomitant]
     Indication: PHLEBITIS
     Dates: start: 201209, end: 201212
  15. HEPARIN [Concomitant]
     Indication: PHLEBITIS
     Dates: start: 201209, end: 2012

REACTIONS (3)
  - Venous thrombosis limb [Recovered/Resolved]
  - Bronchitis [Recovered/Resolved]
  - Diarrhoea [Recovered/Resolved]
